FAERS Safety Report 10055722 (Version 1)
Quarter: 2014Q2

REPORT INFORMATION
  Report Type: Spontaneous
  Country: US (occurrence: US)
  Receive Date: 20140403
  Receipt Date: 20140403
  Transmission Date: 20141212
  Serious: No
  Sender: FDA-Public Use
  Company Number: US-009507513-1403USA009567

PATIENT
  Sex: Male

DRUGS (3)
  1. PEGINTRON [Suspect]
     Indication: HEPATITIS C
     Dosage: CONCENTRATION REPORTED AS 120MCG
     Dates: start: 20140218
  2. REBETOL [Suspect]
     Dosage: UNK
     Route: 048
  3. SOVALDI [Concomitant]
     Dosage: UNK

REACTIONS (6)
  - Pain [Unknown]
  - Influenza like illness [Unknown]
  - Chills [Unknown]
  - Drug dose omission [Unknown]
  - Incorrect dose administered [Unknown]
  - Device difficult to use [Unknown]
